FAERS Safety Report 13134713 (Version 1)
Quarter: 2017Q1

REPORT INFORMATION
  Report Type: Spontaneous
  Country: GB (occurrence: GB)
  Receive Date: 20170120
  Receipt Date: 20170120
  Transmission Date: 20170428
  Serious: Yes (Hospitalization)
  Sender: FDA-Public Use
  Company Number: GB-MYLANLABS-2017M1002822

PATIENT

DRUGS (2)
  1. TEVETEN [Suspect]
     Active Substance: EPROSARTAN MESYLATE
     Indication: HYPERTENSION
     Dosage: 600 MG, BID
  2. TEVETEN [Suspect]
     Active Substance: EPROSARTAN MESYLATE
     Dosage: 600 MG, ONCE

REACTIONS (2)
  - Incorrect dose administered [None]
  - Medication error [Unknown]
